FAERS Safety Report 15195657 (Version 1)
Quarter: 2018Q3

REPORT INFORMATION
  Report Type: Spontaneous
  Country: US (occurrence: US)
  Receive Date: 20180626
  Receipt Date: 20180626
  Transmission Date: 20181010
  Serious: No
  Sender: FDA-Public Use
  Company Number: None

PATIENT
  Age: 60 Year
  Sex: Female
  Weight: 55.35 kg

DRUGS (9)
  1. NORCO [Concomitant]
     Active Substance: ACETAMINOPHEN\HYDROCODONE BITARTRATE
  2. MULTIPLE VITAMIN [Concomitant]
     Active Substance: VITAMINS
  3. NEURONTIN [Concomitant]
     Active Substance: GABAPENTIN
  4. CALCIUM [Concomitant]
     Active Substance: CALCIUM
  5. FORTEO [Suspect]
     Active Substance: TERIPARATIDE
     Indication: OSTEOPOROSIS
     Dosage: ?          QUANTITY:1 INJECTION(S);OTHER ROUTE:INJECTION?
     Dates: start: 20150317, end: 20151201
  6. VOLTAREN [Concomitant]
     Active Substance: DICLOFENAC SODIUM
  7. VITAMIN D [Concomitant]
     Active Substance: CHOLECALCIFEROL
  8. MAGNESIUM [Concomitant]
     Active Substance: MAGNESIUM
  9. COLACE [Concomitant]
     Active Substance: DOCUSATE SODIUM

REACTIONS (25)
  - Sensory disturbance [None]
  - Urinary incontinence [None]
  - Myalgia [None]
  - Coordination abnormal [None]
  - Thirst [None]
  - Asthenia [None]
  - Hypoacusis [None]
  - Depression [None]
  - Alopecia [None]
  - Nausea [None]
  - Heart rate increased [None]
  - Weight increased [None]
  - Ill-defined disorder [None]
  - Abdominal pain [None]
  - Oral candidiasis [None]
  - Feeling cold [None]
  - Arthralgia [None]
  - Vertigo [None]
  - Fatigue [None]
  - Bone pain [None]
  - Gastric disorder [None]
  - Choking sensation [None]
  - Loss of personal independence in daily activities [None]
  - Dry mouth [None]
  - Burn oral cavity [None]

NARRATIVE: CASE EVENT DATE: 20150317
